FAERS Safety Report 7108423-7 (Version None)
Quarter: 2010Q4

REPORT INFORMATION
  Report Type: 
  Country: None (occurrence: None)
  Receive Date: 20101117
  Receipt Date: 20101109
  Transmission Date: 20110411
  Serious: Yes (Hospitalization, Other)
  Sender: FDA-Public Use
  Company Number: B0598823A

PATIENT
  Sex: Female
  Weight: 54 kg

DRUGS (20)
  1. LAMICTAL [Suspect]
     Indication: EPILEPSY
     Dosage: 400MG TWICE PER DAY
     Route: 048
     Dates: start: 20040101
  2. LANSOPRAZOLE [Suspect]
     Route: 065
  3. SERTRALINE HYDROCHLORIDE [Suspect]
     Route: 065
  4. PROPRANOLOL [Suspect]
     Route: 065
  5. DIHYDROCODEINE BITARTRATE INJ [Suspect]
     Route: 065
  6. ARIPIPRAZOLE [Suspect]
     Route: 065
  7. NORETHISTERONE [Suspect]
     Route: 065
  8. DICLOFENAC SODIUM [Concomitant]
  9. OMEPRAZOLE [Concomitant]
  10. LACTULOSE [Concomitant]
  11. BETAMETHASONE [Concomitant]
  12. CHLORAMPHENICOL [Concomitant]
  13. AMOXICILLIN [Concomitant]
  14. FOLIC ACID [Concomitant]
  15. ENSURE PLUS [Concomitant]
  16. PROCHLORPERAZINE [Concomitant]
  17. AMPICILLIN SODIUM/SULBACTAM SODIUM [Concomitant]
  18. LIDOCAINE HYDROCHLORIDE IN PLASTIC CONTAINER [Concomitant]
  19. MICONAZOLE [Concomitant]
  20. CLOBAZAM [Concomitant]

REACTIONS (6)
  - CHOLESTASIS OF PREGNANCY [None]
  - CONVULSION [None]
  - DRUG EXPOSURE DURING PREGNANCY [None]
  - LIVE BIRTH [None]
  - PREGNANCY [None]
  - PREMATURE LABOUR [None]
